FAERS Safety Report 8198399-6 (Version None)
Quarter: 2012Q1

REPORT INFORMATION
  Report Type: 
  Country: None (occurrence: None)
  Receive Date: 20120309
  Receipt Date: 20111202
  Transmission Date: 20120608
  Serious: No
  Sender: FDA-Public Use
  Company Number: US-AMGEN-USASP2011050258

PATIENT
  Sex: Female
  Weight: 57.143 kg

DRUGS (2)
  1. PROLIA [Suspect]
     Indication: OSTEOPOROSIS POSTMENOPAUSAL
     Dosage: 60 MG, Q6MO
     Route: 058
     Dates: start: 20101116
  2. CHOLESTEROL HEALTH [Concomitant]
     Dosage: UNK

REACTIONS (2)
  - MUSCLE DISORDER [None]
  - MUSCLE SPASMS [None]
